FAERS Safety Report 13104722 (Version 1)
Quarter: 2017Q1

REPORT INFORMATION
  Report Type: Spontaneous
  Country: US (occurrence: US)
  Receive Date: 20170111
  Receipt Date: 20170111
  Transmission Date: 20170428
  Serious: No
  Sender: FDA-Public Use
  Company Number: US-PFIZER INC-2017006115

PATIENT
  Age: 28 Year
  Sex: Male
  Weight: 65.77 kg

DRUGS (2)
  1. METRONIDAZOLE. [Suspect]
     Active Substance: METRONIDAZOLE
     Indication: CLOSTRIDIUM DIFFICILE INFECTION
     Dosage: 500 MG, 3X/DAY
     Dates: start: 20161101
  2. METRONIDAZOLE. [Suspect]
     Active Substance: METRONIDAZOLE
     Dosage: 250 MG, UNK (EVERY 3 HOURS WITH FOOD)
     Dates: start: 20161117, end: 20161130

REACTIONS (6)
  - Decreased appetite [Unknown]
  - Diarrhoea [Not Recovered/Not Resolved]
  - Depression [Unknown]
  - Malaise [Unknown]
  - Asthenia [Unknown]
  - Nausea [Unknown]
